FAERS Safety Report 12499374 (Version 2)
Quarter: 2016Q2

REPORT INFORMATION
  Report Type: Spontaneous
  Country: US (occurrence: US)
  Receive Date: 20160627
  Receipt Date: 20160629
  Transmission Date: 20160815
  Serious: No
  Sender: FDA-Public Use
  Company Number: US-BAXALTA-2016BLT004563

PATIENT
  Sex: Female

DRUGS (2)
  1. GAMMAGARD LIQUID [Suspect]
     Active Substance: HUMAN IMMUNOGLOBULIN G
     Dosage: 50 G, EVERY 2 WK
     Route: 042
     Dates: start: 20160617, end: 20160617
  2. GAMMAGARD LIQUID [Suspect]
     Active Substance: HUMAN IMMUNOGLOBULIN G
     Indication: NERVOUS SYSTEM DISORDER
     Dosage: 50 G, EVERY 2 WK
     Route: 042
     Dates: start: 20160617, end: 20160617

REACTIONS (4)
  - Oedema [Unknown]
  - Headache [Unknown]
  - Peripheral swelling [Unknown]
  - Flushing [Unknown]
